FAERS Safety Report 5108244-0 (Version None)
Quarter: 2006Q3

REPORT INFORMATION
  Report Type: 
  Country: None (occurrence: None)
  Receive Date: 20060919
  Receipt Date: 20060913
  Transmission Date: 20061208
  Serious: Yes (Life-Threatening, Other)
  Sender: FDA-Public Use
  Company Number: 2006SE04930

PATIENT
  Age: 61 Year
  Sex: Male

DRUGS (1)
  1. ATACAND [Suspect]
     Route: 048

REACTIONS (3)
  - BLOOD PRESSURE IMMEASURABLE [None]
  - DYSPNOEA [None]
  - VENTRICULAR TACHYCARDIA [None]
